FAERS Safety Report 11989510 (Version 4)
Quarter: 2020Q3

REPORT INFORMATION
  Report Type: Report from Study
  Country: EC (occurrence: EC)
  Receive Date: 20160202
  Receipt Date: 20200724
  Transmission Date: 20201102
  Serious: Yes (Hospitalization, Other)
  Sender: FDA-Public Use
  Company Number: PHHY2016EC013444

PATIENT
  Age: 74 Year
  Sex: Male

DRUGS (1)
  1. SANDOSTATIN LAR DEPOT [Suspect]
     Active Substance: OCTREOTIDE ACETATE
     Indication: ACROMEGALY
     Dosage: 20 MG, QMO
     Route: 030
     Dates: start: 20140915, end: 20200704

REACTIONS (7)
  - Tracheal disorder [Not Recovered/Not Resolved]
  - Pneumonia [Recovered/Resolved]
  - Productive cough [Not Recovered/Not Resolved]
  - Sepsis [Unknown]
  - Dysphagia [Not Recovered/Not Resolved]
  - Paralysis [Not Recovered/Not Resolved]
  - General physical health deterioration [Unknown]

NARRATIVE: CASE EVENT DATE: 20160118
